FAERS Safety Report 20026620 (Version 1)
Quarter: 2021Q4

REPORT INFORMATION
  Report Type: Report from Study
  Country: DE (occurrence: DE)
  Receive Date: 20211102
  Receipt Date: 20211102
  Transmission Date: 20220303
  Serious: Yes (Hospitalization)
  Sender: FDA-Public Use
  Company Number: DE-002147023-PHHY2018DE072620

PATIENT

DRUGS (19)
  1. RUXOLITINIB [Suspect]
     Active Substance: RUXOLITINIB
     Indication: Myelofibrosis
     Dosage: 20 MG, BID
     Route: 048
     Dates: start: 20150319
  2. RUXOLITINIB [Suspect]
     Active Substance: RUXOLITINIB
     Dosage: 30 MG, QD
     Route: 048
     Dates: start: 20150506, end: 20151022
  3. RUXOLITINIB [Suspect]
     Active Substance: RUXOLITINIB
     Dosage: 20 MG/DAY
     Route: 048
     Dates: start: 20151022
  4. XARELTO [Concomitant]
     Active Substance: RIVAROXABAN
     Indication: Thrombosis prophylaxis
     Dosage: 20 QD
     Route: 065
     Dates: start: 20120905, end: 20150625
  5. XARELTO [Concomitant]
     Active Substance: RIVAROXABAN
     Dosage: 15 MG
     Route: 065
     Dates: start: 20150626
  6. METOPROLOL TARTRATE [Concomitant]
     Active Substance: METOPROLOL TARTRATE
     Indication: Hypertension
     Dosage: 95 BID
     Route: 065
     Dates: start: 20120905
  7. RAMIPRIL [Concomitant]
     Active Substance: RAMIPRIL
     Indication: Hypertension
     Dosage: 10 QD
     Route: 065
     Dates: start: 20150120
  8. HYDROCHLOROTHIAZIDE [Concomitant]
     Active Substance: HYDROCHLOROTHIAZIDE
     Indication: Hypertension
     Dosage: 25 QD
     Route: 065
     Dates: start: 20150112
  9. JANUVIA [Concomitant]
     Active Substance: SITAGLIPTIN PHOSPHATE
     Indication: Diabetes mellitus
     Dosage: 50 QD
     Route: 065
     Dates: start: 20150112
  10. TORSEMIDE [Concomitant]
     Active Substance: TORSEMIDE
     Indication: Hypertension
     Dosage: 5 BID
     Route: 065
     Dates: start: 20150112
  11. RASILEZ [Concomitant]
     Active Substance: ALISKIREN
     Indication: Hypertension
     Dosage: 150 BID
     Route: 065
     Dates: start: 20150112
  12. MOXONIDINE [Concomitant]
     Active Substance: MOXONIDINE
     Indication: Hypertension
     Dosage: 0.4 UNK, UNK (1-0-1/2)
     Route: 065
     Dates: start: 20150112
  13. LERCANIDIPINE HYDROCHLORIDE [Concomitant]
     Active Substance: LERCANIDIPINE HYDROCHLORIDE
     Indication: Hypertension
     Dosage: 10 QD
     Route: 065
     Dates: start: 20150112
  14. SIMVASTATIN [Concomitant]
     Active Substance: SIMVASTATIN
     Indication: Hypercholesterolaemia
     Dosage: 20 QD
     Route: 065
     Dates: start: 20150112
  15. NALOXONE HYDROCHLORIDE\OXYCODONE HYDROCHLORIDE [Concomitant]
     Active Substance: NALOXONE HYDROCHLORIDE\OXYCODONE HYDROCHLORIDE
     Indication: Polyneuropathy
     Dosage: 10/5 BID
     Route: 065
     Dates: start: 20150101
  16. NOVALGIN (METAMIZOLE SODIUM) [Concomitant]
     Active Substance: METAMIZOLE SODIUM
     Indication: Polyneuropathy
     Dosage: 500 QID
     Route: 065
     Dates: start: 20150101
  17. IBUPROFEN [Concomitant]
     Active Substance: IBUPROFEN
     Indication: Ligament rupture
     Dosage: 600 BID
     Route: 065
     Dates: start: 20150904
  18. EXJADE [Concomitant]
     Active Substance: DEFERASIROX
     Indication: Iron overload
     Dosage: 360 (3 TABLETS, ACCORDING TO LABORATORY DATA)
     Route: 065
     Dates: start: 20161201, end: 20170502
  19. XULTOPHY 100/3.6 [Concomitant]
     Active Substance: INSULIN DEGLUDEC\LIRAGLUTIDE
     Indication: Diabetes mellitus
     Dosage: BASED ON BLOOD SUGAR VALUES
     Route: 065
     Dates: start: 20170502

REACTIONS (2)
  - General physical health deterioration [Not Recovered/Not Resolved]
  - Intervertebral disc protrusion [Recovering/Resolving]

NARRATIVE: CASE EVENT DATE: 20180111
